FAERS Safety Report 24751673 (Version 1)
Quarter: 2024Q4

REPORT INFORMATION
  Report Type: Spontaneous
  Country: GB (occurrence: GB)
  Receive Date: 20241219
  Receipt Date: 20241219
  Transmission Date: 20250114
  Serious: Yes (Hospitalization, Other)
  Sender: NOVITIUM PHARMA
  Company Number: GB-NOVITIUMPHARMA-2024GBNVP02857

PATIENT
  Age: 36 Year
  Sex: Female

DRUGS (23)
  1. DAPSONE [Suspect]
     Active Substance: DAPSONE
     Indication: Antifungal prophylaxis
  2. SULFAMETHOXAZOLE\TRIMETHOPRIM [Suspect]
     Active Substance: SULFAMETHOXAZOLE\TRIMETHOPRIM
     Indication: Antifungal prophylaxis
  3. VALGANCICLOVIR [Concomitant]
     Active Substance: VALGANCICLOVIR
     Indication: Cytomegalovirus viraemia
  4. Tenofovir-alafenamide [Concomitant]
  5. EMTRICITABINE [Concomitant]
     Active Substance: EMTRICITABINE
  6. Bictegravir [Biktarvy] [Concomitant]
  7. PIPERACILLIN SODIUM\TAZOBACTAM SODIUM [Concomitant]
     Active Substance: PIPERACILLIN SODIUM\TAZOBACTAM SODIUM
  8. MEROPENEM [Concomitant]
     Active Substance: MEROPENEM
  9. VANCOMYCIN [Concomitant]
     Active Substance: VANCOMYCIN
     Indication: Renal impairment
  10. DAPTOMYCIN [Concomitant]
     Active Substance: DAPTOMYCIN
     Indication: Renal impairment
  11. RIFAMPIN [Concomitant]
     Active Substance: RIFAMPIN
  12. ETHAMBUTOL [Concomitant]
     Active Substance: ETHAMBUTOL HYDROCHLORIDE
  13. AZITHROMYCIN [Concomitant]
     Active Substance: AZITHROMYCIN
  14. Tenofovir/Disoproxil-fumarate/Emtricitabine [Concomitant]
  15. DOLUTEGRAVIR [Concomitant]
     Active Substance: DOLUTEGRAVIR
  16. FOSCARNET [Concomitant]
     Active Substance: FOSCARNET
     Indication: Haemophagocytic lymphohistiocytosis
  17. ANAKINRA [Concomitant]
     Active Substance: ANAKINRA
     Indication: Haemophagocytic lymphohistiocytosis
  18. ETOPOSIDE [Concomitant]
     Active Substance: ETOPOSIDE
     Indication: Haemophagocytic lymphohistiocytosis
  19. CIDOFOVIR [Concomitant]
     Active Substance: CIDOFOVIR
     Indication: Cytomegalovirus viraemia
  20. PROBENECID [Concomitant]
     Active Substance: PROBENECID
     Indication: Cytomegalovirus viraemia
  21. AMPHOTERICIN B [Concomitant]
     Active Substance: AMPHOTERICIN B
  22. Immune-globulin [immunoglobulin] [Concomitant]
     Indication: Haemophagocytic lymphohistiocytosis
     Route: 042
  23. DEXAMETHASONE [Concomitant]
     Active Substance: DEXAMETHASONE
     Indication: Cytomegalovirus viraemia
     Dosage: ON DAY 14

REACTIONS (2)
  - Pancytopenia [Recovering/Resolving]
  - Methaemoglobinaemia [Unknown]
